FAERS Safety Report 24273783 (Version 1)
Quarter: 2024Q3

REPORT INFORMATION
  Report Type: Spontaneous
  Country: US (occurrence: US)
  Receive Date: 20240902
  Receipt Date: 20240902
  Transmission Date: 20241017
  Serious: No
  Sender: ASTELLAS
  Company Number: US-ASTELLAS-2024US002354

PATIENT
  Sex: Male

DRUGS (1)
  1. PADCEV [Suspect]
     Active Substance: ENFORTUMAB VEDOTIN-EJFV
     Indication: Product used for unknown indication
     Dosage: 1.25 MG/KG, CYCLIC (SEVEN CYCLES IN)
     Route: 065

REACTIONS (4)
  - Blister [Unknown]
  - Infusion site extravasation [Unknown]
  - Administration site pain [Unknown]
  - Condition aggravated [Unknown]
